FAERS Safety Report 14916342 (Version 1)
Quarter: 2018Q2

REPORT INFORMATION
  Report Type: Spontaneous
  Country: CA (occurrence: CA)
  Receive Date: 20180519
  Receipt Date: 20180519
  Transmission Date: 20180711
  Serious: Yes (Other)
  Sender: FDA-Public Use
  Company Number: CA-ROCHE-2126774

PATIENT

DRUGS (2)
  1. USTEKINUMAB [Concomitant]
     Active Substance: USTEKINUMAB
     Indication: PSORIASIS
     Route: 065
  2. MYCOPHENOLATE MOFETIL. [Suspect]
     Active Substance: MYCOPHENOLATE MOFETIL
     Indication: PSORIASIS
     Route: 065

REACTIONS (2)
  - Nephrotic syndrome [Unknown]
  - Glomerulonephritis membranous [Unknown]
